FAERS Safety Report 18466677 (Version 1)
Quarter: 2020Q4

REPORT INFORMATION
  Report Type: Spontaneous
  Country: ES (occurrence: ES)
  Receive Date: 20201104
  Receipt Date: 20201104
  Transmission Date: 20210114
  Serious: Yes (Hospitalization)
  Sender: FDA-Public Use
  Company Number: ES-009507513-2010ESP011722

PATIENT
  Age: 69 Year
  Sex: Male

DRUGS (7)
  1. BISOPROLOL [Concomitant]
     Active Substance: BISOPROLOL
     Indication: ISCHAEMIC CARDIOMYOPATHY
     Dosage: UNK (28 TABLETS)
     Route: 048
  2. ATOZET 10 MG/80 MG COMPRIMIDOS RECUBIERTOS CON PELICULA [Suspect]
     Active Substance: ATORVASTATIN CALCIUM\EZETIMIBE
     Indication: DYSLIPIDAEMIA
     Dosage: 1 DOSAGE FORM, QD, (30 FILM COATED TABLET)
     Route: 048
     Dates: start: 20190801, end: 20200304
  3. AMIODARONE HYDROCHLORIDE. [Interacting]
     Active Substance: AMIODARONE HYDROCHLORIDE
     Indication: ATRIAL FIBRILLATION
     Dosage: 200 MILLIGRAM, QD
     Route: 048
     Dates: start: 20181101, end: 20200226
  4. PREDNISONA ALONGA [Concomitant]
     Active Substance: PREDNISONE
     Indication: SOLID ORGAN TRANSPLANT
     Dosage: UNK, (30 TABLETS)
     Route: 048
     Dates: start: 20191128
  5. SINTROM [Concomitant]
     Active Substance: ACENOCOUMAROL
     Indication: PULMONARY THROMBOSIS
     Dosage: UNK (20 TABLET)
     Route: 048
  6. TACROLIMUS. [Concomitant]
     Active Substance: TACROLIMUS
     Indication: SOLID ORGAN TRANSPLANT
     Dosage: 1 MILLIGRAM, QD (100 CAPSULES)
     Route: 048
     Dates: start: 2005
  7. ESOMEPRAZOLE. [Concomitant]
     Active Substance: ESOMEPRAZOLE MAGNESIUM
     Indication: GASTRITIS PROPHYLAXIS
     Dosage: UNK (28 TABLET (BLISTER))
     Route: 048

REACTIONS (1)
  - Blood creatine phosphokinase abnormal [Recovered/Resolved]

NARRATIVE: CASE EVENT DATE: 20191216
